FAERS Safety Report 24971799 (Version 1)
Quarter: 2025Q1

REPORT INFORMATION
  Report Type: Spontaneous
  Country: NP (occurrence: NP)
  Receive Date: 20250214
  Receipt Date: 20250214
  Transmission Date: 20250408
  Serious: Yes (Death)
  Sender: PFIZER
  Company Number: NP-PFIZER INC-PV202500016828

PATIENT
  Age: 66 Year
  Sex: Male

DRUGS (1)
  1. XALKORI [Suspect]
     Active Substance: CRIZOTINIB
     Indication: Non-small cell lung cancer
     Dosage: BID

REACTIONS (1)
  - Death [Fatal]

NARRATIVE: CASE EVENT DATE: 20250207
